FAERS Safety Report 4928736-4 (Version None)
Quarter: 2006Q1

REPORT INFORMATION
  Report Type: 
  Country: None (occurrence: None)
  Receive Date: 20060301
  Receipt Date: 20060221
  Transmission Date: 20060701
  Serious: Yes (Hospitalization)
  Sender: FDA-Public Use
  Company Number: US-JNJFOC-20060205339

PATIENT
  Sex: Female
  Weight: 52.16 kg

DRUGS (1)
  1. DURAGESIC-100 [Suspect]
     Dosage: ONE 100 UG/HR PATCH PLUS ONE 25 UG/HR PATCH
     Route: 062

REACTIONS (3)
  - CONVULSION [None]
  - PANCREATIC CYST [None]
  - SALMONELLOSIS [None]
